FAERS Safety Report 10437597 (Version 1)
Quarter: 2014Q3

REPORT INFORMATION
  Report Type: Spontaneous
  Country: PT (occurrence: PT)
  Receive Date: 20140908
  Receipt Date: 20140908
  Transmission Date: 20150326
  Serious: Yes (Hospitalization)
  Sender: FDA-Public Use
  Company Number: PT-MYLAN-2014M1002981

PATIENT

DRUGS (19)
  1. ALPRAZOLAM MYLAN [Suspect]
     Active Substance: ALPRAZOLAM
     Indication: PRODUCT USED FOR UNKNOWN INDICATION
     Dosage: 1 MG, QD
     Route: 048
  2. BETA-HISTINA MYLAN [Suspect]
     Active Substance: BETAHISTINE
     Indication: PRODUCT USED FOR UNKNOWN INDICATION
     Dosage: 16 MG, QD
     Route: 048
  3. OMEPRAZOL MYLAN [Suspect]
     Active Substance: OMEPRAZOLE
     Indication: PRODUCT USED FOR UNKNOWN INDICATION
     Dosage: 20 MG, QD
     Route: 048
  4. CELECOXIB. [Suspect]
     Active Substance: CELECOXIB
     Indication: PRODUCT USED FOR UNKNOWN INDICATION
     Dosage: 200 MG, QD
     Route: 048
  5. TRIHEXYPHENIDYL [Suspect]
     Active Substance: TRIHEXYPHENIDYL
     Indication: PRODUCT USED FOR UNKNOWN INDICATION
     Dosage: 4 MG, QD
     Route: 048
  6. TRIMETAZIDINA MYLAN [Suspect]
     Active Substance: TRIMETAZIDINE
     Indication: PRODUCT USED FOR UNKNOWN INDICATION
     Dosage: 20 MG, QD
     Route: 048
  7. ALFUZOSINA MYLAN [Suspect]
     Active Substance: ALFUZOSIN HYDROCHLORIDE
     Indication: PRODUCT USED FOR UNKNOWN INDICATION
     Dosage: 5 MG, QD
     Route: 048
  8. CITICOLINE [Suspect]
     Active Substance: CITICOLINE
     Indication: PRODUCT USED FOR UNKNOWN INDICATION
     Dosage: 600 MG, QD
     Route: 048
  9. ETORICOXIB [Suspect]
     Active Substance: ETORICOXIB
     Indication: PRODUCT USED FOR UNKNOWN INDICATION
     Dosage: 90 MG, QD
     Route: 048
  10. GLUCOSAMINA MYLAN [Suspect]
     Active Substance: GLUCOSAMINE
     Indication: PRODUCT USED FOR UNKNOWN INDICATION
     Dosage: 1500 MG, QD
     Route: 048
  11. CLIDINIUM BROMIDE [Suspect]
     Active Substance: CLIDINIUM BROMIDE
     Dosage: 2.5 MG, QD
     Route: 048
  12. PAROXETINA MYLAN GENERICS [Suspect]
     Active Substance: PAROXETINE HYDROCHLORIDE
     Indication: PRODUCT USED FOR UNKNOWN INDICATION
     Dosage: 90 MG, QD
  13. SIMVASTATIN. [Suspect]
     Active Substance: SIMVASTATIN
     Indication: PRODUCT USED FOR UNKNOWN INDICATION
     Dosage: 40 MG, QD
  14. ACECLOFENAC MYLAN [Suspect]
     Active Substance: ACECLOFENAC
     Indication: PRODUCT USED FOR UNKNOWN INDICATION
     Dosage: 100 MG, QD
     Route: 048
  15. DEFLAZACORT [Suspect]
     Active Substance: DEFLAZACORT
     Indication: PRODUCT USED FOR UNKNOWN INDICATION
     Dosage: 3 MG, QD
     Route: 048
  16. PROPRANOLOL [Suspect]
     Active Substance: PROPRANOLOL\PROPRANOLOL HYDROCHLORIDE
     Indication: PRODUCT USED FOR UNKNOWN INDICATION
     Dosage: 40 MG, QD
     Route: 048
  17. CHLORDIAZEPOXIDE [Suspect]
     Active Substance: CHLORDIAZEPOXIDE
     Indication: PRODUCT USED FOR UNKNOWN INDICATION
     Dosage: 5 MG, QD
     Route: 048
  18. TRAZODONE [Suspect]
     Active Substance: TRAZODONE HYDROCHLORIDE
     Indication: PRODUCT USED FOR UNKNOWN INDICATION
     Dosage: 150 MG, QD
     Route: 048
  19. OCTYLONIUM BROMIDE [Suspect]
     Active Substance: OTILONIUM BROMIDE
     Indication: PRODUCT USED FOR UNKNOWN INDICATION
     Dosage: 40 MG, QD
     Route: 048

REACTIONS (7)
  - Disturbance in attention [Recovering/Resolving]
  - Disorientation [Recovering/Resolving]
  - Gait disturbance [Recovering/Resolving]
  - Dementia [Recovering/Resolving]
  - Myoclonus [Recovering/Resolving]
  - Memory impairment [Recovering/Resolving]
  - Apraxia [Recovering/Resolving]
